FAERS Safety Report 13362970 (Version 1)
Quarter: 2017Q1

REPORT INFORMATION
  Report Type: Other
  Country: IT (occurrence: IT)
  Receive Date: 20170323
  Receipt Date: 20170323
  Transmission Date: 20170429
  Serious: Yes (Other)
  Sender: FDA-Public Use
  Company Number: IT-HIKMA PHARMACEUTICALS CO. LTD-2017IT003541

PATIENT

DRUGS (12)
  1. FOLINA                             /00024201/ [Concomitant]
     Active Substance: FOLIC ACID
     Dosage: 5 MG, UNK
  2. BISOPROLOL FUMARATE. [Concomitant]
     Active Substance: BISOPROLOL FUMARATE
  3. INFLIXIMAB HOSPIRA [Suspect]
     Active Substance: INFLIXIMAB
     Indication: CROHN^S DISEASE
     Dosage: 5 MG/KG OF BODY WEIGHT, CYCLIC
     Route: 042
     Dates: start: 20160115, end: 20160331
  4. ESOPRAL                            /01479301/ [Concomitant]
     Dosage: 40 MG, UNK
  5. DOBETIN                            /00056201/ [Concomitant]
     Active Substance: CYANOCOBALAMIN
     Dosage: 1000  UG, UNK
  6. MESALAZINA SANDOZ [Concomitant]
  7. CLOPIDOGREL [Concomitant]
     Active Substance: CLOPIDOGREL BISULFATE
  8. ATORVASTATIN [Concomitant]
     Active Substance: ATORVASTATIN
  9. TARGIN [Concomitant]
     Active Substance: NALOXONE HYDROCHLORIDE\OXYCODONE HYDROCHLORIDE
     Dosage: 40 MG, UNK
  10. PREDNISONE. [Concomitant]
     Active Substance: PREDNISONE
  11. PAROXETINE. [Concomitant]
     Active Substance: PAROXETINE
     Dosage: 10 MG, UNK
  12. TRINIPLAS [Concomitant]
     Active Substance: NITROGLYCERIN
     Dosage: 1 DF, UNK

REACTIONS (1)
  - Drug ineffective [Recovering/Resolving]

NARRATIVE: CASE EVENT DATE: 20160331
